FAERS Safety Report 13314548 (Version 4)
Quarter: 2017Q4

REPORT INFORMATION
  Report Type: Spontaneous
  Country: JP (occurrence: JP)
  Receive Date: 20170309
  Receipt Date: 20171102
  Transmission Date: 20180320
  Serious: Yes (Hospitalization)
  Sender: FDA-Public Use
  Company Number: PHJP2017JP007919

PATIENT
  Age: 47 Year
  Sex: Male

DRUGS (2)
  1. GLIVEC [Suspect]
     Active Substance: IMATINIB MESYLATE
     Indication: GASTROINTESTINAL STROMAL TUMOUR
     Dosage: UNK
     Route: 048
     Dates: start: 201606, end: 201609
  2. GLIVEC [Suspect]
     Active Substance: IMATINIB MESYLATE
     Dosage: UNK
     Route: 048
     Dates: start: 201610

REACTIONS (7)
  - Pyrexia [Recovered/Resolved]
  - Malignant neoplasm progression [Recovered/Resolved]
  - Drug resistance [Unknown]
  - Bacterial infection [Recovered/Resolved]
  - Gastrointestinal stromal tumour [Recovered/Resolved]
  - Metastases to liver [Recovered/Resolved]
  - Tumour necrosis [Unknown]

NARRATIVE: CASE EVENT DATE: 201609
